FAERS Safety Report 5411165-7 (Version None)
Quarter: 2007Q3

REPORT INFORMATION
  Report Type: 
  Country: None (occurrence: None)
  Receive Date: 20070808
  Receipt Date: 20070727
  Transmission Date: 20080115
  Serious: Yes (Hospitalization)
  Sender: FDA-Public Use
  Company Number: 2007AL003055

PATIENT
  Age: 61 Year
  Sex: Female

DRUGS (4)
  1. CITALOPRAM HYDROBROMIDE [Suspect]
     Indication: DEPRESSION
     Dosage: 30 MG; QD; PO
     Route: 048
  2. PARALGIN FORTE [Concomitant]
  3. ACTIVELLE [Concomitant]
  4. PARACET [Concomitant]

REACTIONS (3)
  - ABDOMINAL PAIN LOWER [None]
  - LIVER DISORDER [None]
  - VOMITING [None]
